FAERS Safety Report 7192245-5 (Version None)
Quarter: 2010Q4

REPORT INFORMATION
  Report Type: 
  Country: None (occurrence: None)
  Receive Date: 20101223
  Receipt Date: 20101213
  Transmission Date: 20110411
  Serious: Yes (Other)
  Sender: FDA-Public Use
  Company Number: GXKR2010SI14134

PATIENT
  Sex: Female

DRUGS (3)
  1. HALOPERIDOL (NGX) [Suspect]
     Route: 065
  2. FLURAZEPAM (NGX) [Interacting]
     Route: 065
  3. FLUPHENAZINE (NGX) [Interacting]
     Route: 065

REACTIONS (2)
  - DRUG INTERACTION [None]
  - SEROTONIN SYNDROME [None]
